FAERS Safety Report 8625475-3 (Version None)
Quarter: 2012Q3

REPORT INFORMATION
  Report Type: 
  Country: None (occurrence: None)
  Receive Date: 20120827
  Receipt Date: 20111010
  Transmission Date: 20120928
  Serious: Yes (Hospitalization)
  Sender: FDA-Public Use
  Company Number: FR-ROCHE-1003710

PATIENT
  Sex: Female

DRUGS (9)
  1. ROCEPHIN [Suspect]
     Indication: BRONCHITIS
     Route: 042
     Dates: start: 20110811, end: 20110822
  2. LASIX [Suspect]
     Indication: HYPERTENSION
     Route: 048
     Dates: start: 20110817
  3. ROXITHROMYCINE [Suspect]
     Indication: BRONCHITIS
     Route: 048
     Dates: start: 20110816, end: 20110823
  4. POTASSIUM CHLORIDE [Concomitant]
     Indication: MINERAL SUPPLEMENTATION
     Route: 048
     Dates: start: 20110820, end: 20110825
  5. POTASSIUM CHLORIDE [Concomitant]
     Route: 048
     Dates: start: 20110903
  6. PROPYLTHIOURACIL [Suspect]
     Indication: PRODUCT USED FOR UNKNOWN INDICATION
     Route: 048
     Dates: start: 20110818, end: 20110822
  7. ROVAMYCINE [Suspect]
     Indication: BRONCHITIS
     Route: 065
     Dates: start: 20110811
  8. FLAGYL [Suspect]
     Indication: ORAL CANDIDIASIS
     Route: 048
     Dates: start: 20110813, end: 20110829
  9. TRANSIPEG (FRANCE) [Concomitant]
     Indication: CONSTIPATION
     Route: 048

REACTIONS (1)
  - DRUG ERUPTION [None]
